FAERS Safety Report 24553586 (Version 1)
Quarter: 2024Q4

REPORT INFORMATION
  Report Type: Report from Study
  Country: US (occurrence: US)
  Receive Date: 20241028
  Receipt Date: 20241028
  Transmission Date: 20250115
  Serious: No
  Sender: ROCHE
  Company Number: US-ROCHE-3441395

PATIENT
  Age: 12 Year
  Sex: Male
  Weight: 34.02 kg

DRUGS (1)
  1. NUTROPIN AQ [Suspect]
     Active Substance: SOMATROPIN
     Indication: Short stature
     Dosage: ONCE A DAY, EVERY EVENING
     Route: 058

REACTIONS (4)
  - Burning sensation [Unknown]
  - Underdose [Unknown]
  - Product complaint [Unknown]
  - Device malfunction [Unknown]

NARRATIVE: CASE EVENT DATE: 20231013
